FAERS Safety Report 15360006 (Version 1)
Quarter: 2018Q3

REPORT INFORMATION
  Report Type: Report from Study
  Country: None (occurrence: DE)
  Receive Date: 20180907
  Receipt Date: 20180907
  Transmission Date: 20181010
  Serious: Yes (Hospitalization)
  Sender: FDA-Public Use
  Company Number: DE-ABBVIE-18K-062-2473848-00

PATIENT
  Age: 45 Year
  Sex: Male

DRUGS (2)
  1. HUMIRA [Suspect]
     Active Substance: ADALIMUMAB
     Indication: COLITIS ULCERATIVE
     Route: 058
     Dates: start: 20180816, end: 2018
  2. HUMIRA [Suspect]
     Active Substance: ADALIMUMAB
     Route: 058
     Dates: start: 2018

REACTIONS (6)
  - Nausea [Recovering/Resolving]
  - Paraesthesia [Not Recovered/Not Resolved]
  - Decreased appetite [Recovering/Resolving]
  - Drug ineffective [Unknown]
  - Skin tightness [Not Recovered/Not Resolved]
  - Retching [Recovering/Resolving]

NARRATIVE: CASE EVENT DATE: 201808
